FAERS Safety Report 4738260-X (Version None)
Quarter: 2005Q3

REPORT INFORMATION
  Report Type: 
  Country: None (occurrence: None)
  Receive Date: 20050803
  Receipt Date: 20050721
  Transmission Date: 20060218
  Serious: Yes (Hospitalization)
  Sender: FDA-Public Use
  Company Number: 11906

PATIENT
  Age: 12 Year
  Sex: Male

DRUGS (4)
  1. METHOTREXATE [Suspect]
     Dosage: 22 MG WEEKLY/20 MG WEEKLY SC/PO/SC
     Route: 058
     Dates: start: 19980818, end: 20040101
  2. METHOTREXATE [Suspect]
     Dosage: 22 MG WEEKLY/20 MG WEEKLY SC/PO/SC
     Route: 058
     Dates: end: 20041125
  3. METHOTREXATE [Suspect]
     Dosage: 22 MG WEEKLY/20 MG WEEKLY SC/PO/SC
     Route: 058
     Dates: start: 20041126
  4. PREDNISOLONE [Concomitant]

REACTIONS (8)
  - CONDITION AGGRAVATED [None]
  - EPISTAXIS [None]
  - JUVENILE ARTHRITIS [None]
  - LYMPHADENITIS [None]
  - PHOTOPHOBIA [None]
  - RASH [None]
  - SPLENOMEGALY [None]
  - VOMITING [None]
